FAERS Safety Report 24579557 (Version 1)
Quarter: 2024Q4

REPORT INFORMATION
  Report Type: Report from Study
  Country: US (occurrence: US)
  Receive Date: 20241105
  Receipt Date: 20241105
  Transmission Date: 20250115
  Serious: Yes (Other)
  Sender: TAKEDA
  Company Number: US-TAKEDA-2024TUS108396

PATIENT
  Sex: Male

DRUGS (1)
  1. VEDOLIZUMAB [Suspect]
     Active Substance: VEDOLIZUMAB
     Indication: Product used for unknown indication
     Dosage: 300 MILLIGRAM
     Route: 042

REACTIONS (6)
  - Cerebrovascular accident [Unknown]
  - Loss of consciousness [Unknown]
  - Malaise [Unknown]
  - Balance disorder [Unknown]
  - Asthenia [Unknown]
  - Product dose omission issue [Unknown]
